FAERS Safety Report 8170970-7 (Version None)
Quarter: 2012Q1

REPORT INFORMATION
  Report Type: 
  Country: None (occurrence: None)
  Receive Date: 20120228
  Receipt Date: 20120217
  Transmission Date: 20120608
  Serious: Yes (Hospitalization)
  Sender: FDA-Public Use
  Company Number: US-BAYER-2011-083662

PATIENT
  Sex: Female
  Weight: 127 kg

DRUGS (7)
  1. METRONIDAZOLE [Concomitant]
     Dosage: UNK
     Dates: start: 20090101, end: 20110101
  2. YAZ [Suspect]
     Dosage: UNK
     Dates: start: 20081229, end: 20091231
  3. IBUPROFEN (ADVIL) [Concomitant]
     Dosage: UNK
     Dates: start: 20090101, end: 20110101
  4. VITAMIN B COMPLEX CAP [Concomitant]
     Dosage: UNK
     Dates: start: 20090101, end: 20110101
  5. AMOXICILLIN [Concomitant]
     Dosage: UNK
     Dates: start: 20090101, end: 20110101
  6. NAPROXEN (ALEVE) [Concomitant]
     Dosage: UNK
     Dates: start: 20090101, end: 20110101
  7. IBUPROFEN [Concomitant]
     Dosage: UNK
     Dates: start: 20090101, end: 20110101

REACTIONS (7)
  - EMOTIONAL DISTRESS [None]
  - CHOLECYSTECTOMY [None]
  - GENERAL PHYSICAL HEALTH DETERIORATION [None]
  - INJURY [None]
  - ANXIETY [None]
  - ANHEDONIA [None]
  - ABDOMINAL PAIN UPPER [None]
